FAERS Safety Report 9174958 (Version 1)
Quarter: 2013Q1

REPORT INFORMATION
  Report Type: Spontaneous
  Country: US (occurrence: US)
  Receive Date: 20130320
  Receipt Date: 20130320
  Transmission Date: 20140127
  Serious: No
  Sender: FDA-Public Use
  Company Number: US-TARO-2013P1000334

PATIENT
  Age: 80 Year
  Sex: Male
  Weight: 68.04 kg

DRUGS (3)
  1. FLUOROURACIL [Suspect]
     Dates: start: 2008
  2. FLUOROURACIL [Suspect]
     Route: 061
     Dates: start: 20121029, end: 20121031
  3. UNSPECIFIED BLOOD PRESSURE MEDICINE [Concomitant]

REACTIONS (5)
  - Application site erythema [Recovered/Resolved]
  - Application site vesicles [Recovered/Resolved]
  - Application site burn [Recovered/Resolved]
  - Application site pain [Recovered/Resolved]
  - Application site exfoliation [Recovered/Resolved]
